FAERS Safety Report 16946317 (Version 1)
Quarter: 2019Q4

REPORT INFORMATION
  Report Type: Spontaneous
  Country: PT (occurrence: PT)
  Receive Date: 20191022
  Receipt Date: 20191022
  Transmission Date: 20200122
  Serious: Yes (Other)
  Sender: FDA-Public Use
  Company Number: PT-ALIMERA SCIENCES LIMITED-PT-IL-2019-004490

PATIENT
  Age: 54 Year
  Sex: Male

DRUGS (1)
  1. ILUVIEN [Suspect]
     Active Substance: FLUOCINOLONE ACETONIDE
     Indication: DIABETIC RETINAL OEDEMA
     Dosage: 0.25 ?G, QD-UNK
     Route: 031
     Dates: start: 2019

REACTIONS (6)
  - Product administration error [Unknown]
  - Glaucoma [Unknown]
  - Vitrectomy [Unknown]
  - Cataract operation [Unknown]
  - Cataract traumatic [Unknown]
  - Eye laser surgery [Unknown]
